FAERS Safety Report 5657004-0 (Version None)
Quarter: 2008Q1

REPORT INFORMATION
  Report Type: 
  Country: None (occurrence: None)
  Receive Date: 20080307
  Receipt Date: 20080307
  Transmission Date: 20080703
  Serious: No
  Sender: FDA-Public Use
  Company Number: None

PATIENT
  Sex: Male
  Weight: 57.6 kg

DRUGS (3)
  1. CISPLATIN [Suspect]
     Dosage: 105 MG
  2. ERBITUX [Suspect]
     Dosage: 1310 MG
  3. CAMPTOSAR [Suspect]
     Dosage: 229 MG

REACTIONS (1)
  - PULMONARY EMBOLISM [None]
